FAERS Safety Report 6199732-7 (Version None)
Quarter: 2009Q2

REPORT INFORMATION
  Report Type: 
  Country: None (occurrence: None)
  Receive Date: 20090522
  Receipt Date: 20090511
  Transmission Date: 20091009
  Serious: Yes (Hospitalization)
  Sender: FDA-Public Use
  Company Number: US-ELI_LILLY_AND_COMPANY-US200902006503

PATIENT
  Age: 64 Year
  Sex: Female

DRUGS (10)
  1. CYMBALTA [Suspect]
     Dosage: 60 MG, UNK
     Dates: end: 20090202
  2. RISPERDAL [Concomitant]
     Dosage: 3 MG, UNK
  3. IMURAN [Concomitant]
     Dosage: 150 MG, UNK
  4. DAPSONE [Concomitant]
     Dosage: 100 MG, UNK
  5. DURAGESIC-100 [Concomitant]
     Dosage: 250 MEQ, UNK
  6. PERCOCET [Concomitant]
     Dosage: UNK, AS NEEDED
  7. XANAX [Concomitant]
     Dosage: UNK, AS NEEDED
  8. ADVAIR HFA [Concomitant]
     Dosage: 1 D/F, UNK
  9. CRESTOR [Concomitant]
     Dosage: 10 MG, UNK
  10. VITAMIN D [Concomitant]
     Dosage: 400 MG, UNK

REACTIONS (7)
  - ABNORMAL BEHAVIOUR [None]
  - DISSOCIATION [None]
  - DYSARTHRIA [None]
  - HOSPITALISATION [None]
  - MANIA [None]
  - PSYCHOTIC DISORDER [None]
  - PYREXIA [None]
